FAERS Safety Report 11516774 (Version 1)
Quarter: 2015Q3

REPORT INFORMATION
  Report Type: Spontaneous
  Country: US (occurrence: None)
  Receive Date: 20150916
  Receipt Date: 20150916
  Transmission Date: 20151125
  Serious: No
  Sender: FDA-Public Use
  Company Number: None

PATIENT
  Sex: Male

DRUGS (10)
  1. LEVOTHYROXIN [Concomitant]
     Active Substance: LEVOTHYROXINE
  2. PREDNISONE. [Concomitant]
     Active Substance: PREDNISONE
  3. CYCLOSPORINE. [Concomitant]
     Active Substance: CYCLOSPORINE
  4. STELARA [Suspect]
     Active Substance: USTEKINUMAB
     Indication: PSORIATIC ARTHROPATHY
     Dosage: 45MG EVERY 3 MONTHS SUBCUTANEOUSLY
     Route: 058
  5. MYCOPHENOLATE [Concomitant]
     Active Substance: MYCOPHENOLIC ACID
  6. TOPIRAMATE. [Concomitant]
     Active Substance: TOPIRAMATE
  7. ALENDRONATE [Concomitant]
     Active Substance: ALENDRONATE SODIUM
  8. FOLIC ACID. [Concomitant]
     Active Substance: FOLIC ACID
  9. METOPROLOL [Concomitant]
     Active Substance: METOPROLOL
  10. VYTORIN [Concomitant]
     Active Substance: EZETIMIBE\SIMVASTATIN

REACTIONS (1)
  - Rash [None]

NARRATIVE: CASE EVENT DATE: 2015
